FAERS Safety Report 14338103 (Version 1)
Quarter: 2017Q4

REPORT INFORMATION
  Report Type: Report from Study
  Country: US (occurrence: US)
  Receive Date: 20171229
  Receipt Date: 20171229
  Transmission Date: 20180321
  Serious: Yes (Death, Other)
  Sender: FDA-Public Use
  Company Number: US-MYLANLABS-2017M1076167

PATIENT
  Age: 43 Year
  Sex: Male
  Weight: 272 kg

DRUGS (2)
  1. CLOZAPINE. [Suspect]
     Active Substance: CLOZAPINE
     Indication: SCHIZOPHRENIA
     Dosage: 150 MG, AM
     Route: 048
     Dates: start: 20160712, end: 20171126
  2. HALDOL [Concomitant]
     Active Substance: HALOPERIDOL
     Indication: PRODUCT USED FOR UNKNOWN INDICATION
     Dosage: 200 MG, MONTHLY
     Route: 030

REACTIONS (4)
  - Death [Fatal]
  - Blood pressure decreased [Unknown]
  - Unresponsive to stimuli [Unknown]
  - Dizziness [Unknown]

NARRATIVE: CASE EVENT DATE: 201711
